FAERS Safety Report 8092786-2 (Version None)
Quarter: 2011Q4

REPORT INFORMATION
  Report Type: 
  Country: None (occurrence: None)
  Receive Date: 20111222
  Receipt Date: 20110919
  Transmission Date: 20120403
  Serious: Yes (Death, Hospitalization)
  Sender: FDA-Public Use
  Company Number: UTC-009500

PATIENT
  Age: 69 Year
  Sex: Female
  Weight: 110 kg

DRUGS (18)
  1. PROSTACYCLINS (EPOPROSTENOL) [Concomitant]
  2. REMODULIN [Concomitant]
  3. MINOXIDIL [Concomitant]
  4. ATENOLOL [Concomitant]
  5. SULFASALAZINE [Concomitant]
  6. QVAR [Concomitant]
  7. REVATIO [Concomitant]
  8. CATAPRESS (CLONIDUBE) [Concomitant]
  9. TYVASO [Suspect]
     Indication: RHEUMATOID ARTHRITIS
     Dosage: 216 MCG  (54 MCG, 4 IN 1 D), INHALATION
     Route: 055
     Dates: start: 20110718, end: 20110808
  10. ZESTRIL [Concomitant]
  11. PREDNISONE TAB [Concomitant]
  12. PLAQUENIL [Concomitant]
  13. CALAN [Concomitant]
  14. REMICADE [Concomitant]
  15. TRACLEER [Suspect]
     Indication: PULMONARY ARTERIAL HYPERTENSION
     Dosage: 250 MG (125 MG, 2 IN 1 D), ORAL,  125 MG (62.5 MG, 2 IN 1 D), ORAL
     Route: 048
     Dates: start: 20110224, end: 20110101
  16. TRACLEER [Suspect]
     Indication: PULMONARY ARTERIAL HYPERTENSION
     Dosage: 250 MG (125 MG, 2 IN 1 D), ORAL,  125 MG (62.5 MG, 2 IN 1 D), ORAL
     Route: 048
     Dates: start: 20110101, end: 20110815
  17. ARAVA [Concomitant]
  18. LASIX [Concomitant]

REACTIONS (5)
  - DYSPNOEA [None]
  - OXYGEN SATURATION DECREASED [None]
  - PULMONARY ARTERIAL HYPERTENSION [None]
  - INTERSTITIAL LUNG DISEASE [None]
  - HYPOXIA [None]
